FAERS Safety Report 9001062 (Version 2)
Quarter: 2013Q1

REPORT INFORMATION
  Report Type: Spontaneous
  Country: US (occurrence: None)
  Receive Date: 20121226
  Receipt Date: 20130308
  Transmission Date: 20140127
  Serious: Yes (Hospitalization)
  Sender: FDA-Public Use
  Company Number: ACO_33425_2012

PATIENT
  Age: 56 Year
  Sex: Female

DRUGS (5)
  1. AMPYRA (DALFAMPRIDINE) TABLET, 10MG [Suspect]
     Indication: GAIT DISTURBANCE
     Dates: start: 20120626
  2. METHOTREXATE (METHOTREXATE) [Suspect]
     Indication: PRODUCT USED FOR UNKNOWN INDICATION
     Dates: start: 2006, end: 20121028
  3. AMITRIPTYLINE (AMITRIPTYLINE) [Concomitant]
  4. REQUIP (ROPINIROLE HYDROCHLORIDE) [Concomitant]
  5. SYNTHROID (LEVOTHYROXINE SODIUM) [Concomitant]

REACTIONS (3)
  - VIIth nerve paralysis [None]
  - Herpes zoster [None]
  - Skin infection [None]
